FAERS Safety Report 19042560 (Version 1)
Quarter: 2021Q1

REPORT INFORMATION
  Report Type: Spontaneous
  Country: IL (occurrence: IL)
  Receive Date: 20210322
  Receipt Date: 20210322
  Transmission Date: 20210420
  Serious: Yes (Death, Disabling, Other)
  Sender: FDA-Public Use
  Company Number: IL-ORGANON-1605ISR004875

PATIENT
  Age: 49 Year
  Sex: Male

DRUGS (1)
  1. PROPECIA [Suspect]
     Active Substance: FINASTERIDE
     Indication: ALOPECIA
     Dosage: 1 MILLIGRAM
     Route: 048
     Dates: start: 20150623, end: 20150629

REACTIONS (50)
  - Anxiety [Not Recovered/Not Resolved]
  - Sleep disorder [Unknown]
  - Heart rate increased [Unknown]
  - Pruritus [Unknown]
  - Face injury [Unknown]
  - Completed suicide [Fatal]
  - Neuropathy peripheral [Unknown]
  - Mental disorder [Unknown]
  - Post 5-alpha-reductase inhibitor syndrome [Unknown]
  - Endocrine disorder [Unknown]
  - Tic [Unknown]
  - Adverse event [Unknown]
  - Drug withdrawal syndrome [Unknown]
  - Loss of personal independence in daily activities [Unknown]
  - Suicidal ideation [Unknown]
  - Hypertension [Unknown]
  - Hyperhidrosis [Unknown]
  - Muscle spasms [Unknown]
  - Feeling abnormal [Unknown]
  - Negative thoughts [Unknown]
  - Insomnia [Not Recovered/Not Resolved]
  - Restlessness [Unknown]
  - Weight decreased [Unknown]
  - Weight decreased [Unknown]
  - Malaise [Unknown]
  - Hypoaesthesia [Unknown]
  - Anxiety disorder [Unknown]
  - Thinking abnormal [Unknown]
  - Self esteem decreased [Unknown]
  - Dizziness [Unknown]
  - Disability [Unknown]
  - Insomnia [Unknown]
  - Vision blurred [Unknown]
  - Eye swelling [Unknown]
  - External ear inflammation [Unknown]
  - Disturbance in attention [Unknown]
  - Depressed mood [Unknown]
  - Fasciolopsiasis [Unknown]
  - Panic disorder [Unknown]
  - Agoraphobia [Unknown]
  - Heart rate increased [Unknown]
  - Eye inflammation [Unknown]
  - Cognitive disorder [Unknown]
  - Memory impairment [Unknown]
  - Fatigue [Unknown]
  - Hypertension [Unknown]
  - Depression [Unknown]
  - Madarosis [Unknown]
  - Asthenia [Unknown]
  - Hyperhidrosis [Unknown]

NARRATIVE: CASE EVENT DATE: 2015
